FAERS Safety Report 5045429-6 (Version None)
Quarter: 2006Q3

REPORT INFORMATION
  Report Type: 
  Country: None (occurrence: None)
  Receive Date: 20060707
  Receipt Date: 20060703
  Transmission Date: 20061208
  Serious: Yes (Life-Threatening)
  Sender: FDA-Public Use
  Company Number: 2006AP03029

PATIENT
  Age: 25257 Day
  Sex: Male

DRUGS (6)
  1. IRESSA [Suspect]
     Indication: NON-SMALL CELL LUNG CANCER
     Route: 048
     Dates: start: 20060623, end: 20060630
  2. PARACETAMOL [Concomitant]
     Indication: CANCER PAIN
     Route: 048
     Dates: start: 20060615
  3. CODEINE [Concomitant]
     Indication: CANCER PAIN
     Route: 048
     Dates: start: 20060615
  4. CODEINE [Concomitant]
     Route: 048
     Dates: start: 20060615
  5. CEFOTAXIME [Concomitant]
     Indication: INFECTION
     Route: 042
     Dates: start: 20060620
  6. ACTRAPID HM [Concomitant]
     Indication: DIABETES MELLITUS
     Route: 058
     Dates: start: 20060621

REACTIONS (1)
  - GASTROINTESTINAL HAEMORRHAGE [None]
